FAERS Safety Report 11455070 (Version 1)
Quarter: 2015Q3

REPORT INFORMATION
  Report Type: Spontaneous
  Country: US (occurrence: US)
  Receive Date: 20150903
  Receipt Date: 20150903
  Transmission Date: 20151125
  Serious: Yes (Other)
  Sender: FDA-Public Use
  Company Number: US-GLAXOSMITHKLINE-US2015GSK124490

PATIENT
  Sex: Male

DRUGS (1)
  1. AVANDIA [Suspect]
     Active Substance: ROSIGLITAZONE MALEATE
     Indication: BLOOD GLUCOSE
     Dosage: UNK, U

REACTIONS (3)
  - Intracranial aneurysm [Unknown]
  - Thrombosis [Unknown]
  - Dyspnoea [Unknown]
